FAERS Safety Report 7360839-X (Version None)
Quarter: 2011Q1

REPORT INFORMATION
  Report Type: 
  Country: None (occurrence: None)
  Receive Date: 20110318
  Receipt Date: 20110314
  Transmission Date: 20110831
  Serious: Yes (Death, Hospitalization, Other)
  Sender: FDA-Public Use
  Company Number: BR-ACTELION-A-CH2011-45339

PATIENT
  Sex: Male

DRUGS (5)
  1. FUROSEMIDE [Concomitant]
  2. TRACLEER [Suspect]
     Dosage: 62.5 MG, BID
     Route: 048
     Dates: start: 20100520, end: 20100908
  3. TRACLEER [Suspect]
     Dosage: 125 MG, BID
     Route: 048
     Dates: start: 20090801, end: 20100519
  4. TRACLEER [Suspect]
     Indication: PULMONARY ARTERIAL HYPERTENSION
     Dosage: 62.5 MG, BID
     Route: 048
     Dates: start: 20090701, end: 20090731
  5. WARFARIN SODIUM [Concomitant]

REACTIONS (3)
  - SEPSIS [None]
  - RENAL FAILURE [None]
  - BLOOD BILIRUBIN INCREASED [None]
